FAERS Safety Report 4494530-4 (Version None)
Quarter: 2004Q4

REPORT INFORMATION
  Report Type: 
  Country: None (occurrence: None)
  Receive Date: 20041103
  Receipt Date: 20041020
  Transmission Date: 20050328
  Serious: Yes (Other)
  Sender: FDA-Public Use
  Company Number: 239936

PATIENT
  Age: 66 Year
  Sex: Female

DRUGS (2)
  1. INSULIN ASPART [Suspect]
     Indication: DIABETES MELLITUS
  2. DIAFORMIN [Concomitant]

REACTIONS (1)
  - LYMPHOMA [None]
